FAERS Safety Report 7583033-6 (Version None)
Quarter: 2011Q2

REPORT INFORMATION
  Report Type: 
  Country: None (occurrence: None)
  Receive Date: 20110630
  Receipt Date: 20110624
  Transmission Date: 20111010
  Serious: Yes (Other)
  Sender: FDA-Public Use
  Company Number: IT-BRISTOL-MYERS SQUIBB COMPANY-15268691

PATIENT
  Age: 68 Year
  Sex: Male

DRUGS (1)
  1. IPILIMUMAB [Suspect]
     Dosage: INTERRUPTED ON 31AUG2010 NO OF COURSE:13
     Route: 042
     Dates: start: 20071120, end: 20100831

REACTIONS (1)
  - HYPERSENSITIVITY [None]
